FAERS Safety Report 13154242 (Version 1)
Quarter: 2017Q1

REPORT INFORMATION
  Report Type: Spontaneous
  Country: US (occurrence: US)
  Receive Date: 20170126
  Receipt Date: 20170126
  Transmission Date: 20170428
  Serious: No
  Sender: FDA-Public Use
  Company Number: US-AMGEN-USASP2016129046

PATIENT
  Sex: Male

DRUGS (5)
  1. POMALYST [Concomitant]
     Active Substance: POMALIDOMIDE
     Dosage: UNK
     Dates: start: 20160513
  2. DEXAMETHASONE. [Concomitant]
     Active Substance: DEXAMETHASONE
     Dosage: UNK
     Dates: start: 20160513
  3. KYPROLIS [Suspect]
     Active Substance: CARFILZOMIB
     Indication: PRODUCT USED FOR UNKNOWN INDICATION
     Dosage: UNK
     Route: 065
     Dates: start: 20160513
  4. VELCADE [Concomitant]
     Active Substance: BORTEZOMIB
     Dosage: 25 MG, UNK
  5. REVLIMID [Concomitant]
     Active Substance: LENALIDOMIDE
     Dosage: 25 MG, UNK

REACTIONS (2)
  - Tinnitus [Unknown]
  - Pyrexia [Unknown]

NARRATIVE: CASE EVENT DATE: 20160515
